FAERS Safety Report 5391011-0 (Version None)
Quarter: 2007Q3

REPORT INFORMATION
  Report Type: 
  Country: None (occurrence: None)
  Receive Date: 20070716
  Receipt Date: 20070628
  Transmission Date: 20080115
  Serious: Yes (Life-Threatening, Other)
  Sender: FDA-Public Use
  Company Number: VER_00055_2007

PATIENT
  Sex: Female
  Weight: 75.7507 kg

DRUGS (3)
  1. TWINJECT [Suspect]
     Indication: FOOD ALLERGY
     Dosage: (0.3 MG PRN INTRAMUSCULAR)
     Route: 030
     Dates: start: 20070420
  2. TWINJECT [Suspect]
     Indication: HYPERSENSITIVITY
     Dosage: (0.3 MG PRN INTRAMUSCULAR)
     Route: 030
     Dates: start: 20070420
  3. PROTONIX /01236201/ [Concomitant]

REACTIONS (3)
  - ANAPHYLACTIC REACTION [None]
  - CARDIO-RESPIRATORY ARREST [None]
  - PHARMACEUTICAL PRODUCT COMPLAINT [None]
